FAERS Safety Report 20012711 (Version 2)
Quarter: 2021Q4

REPORT INFORMATION
  Report Type: Spontaneous
  Country: CA (occurrence: CA)
  Receive Date: 20211029
  Receipt Date: 20211108
  Transmission Date: 20220303
  Serious: Yes (Hospitalization, Other)
  Sender: FDA-Public Use
  Company Number: CA-PFIZER INC-202101440381

PATIENT
  Age: 86 Year
  Sex: Female

DRUGS (8)
  1. ARICEPT [Suspect]
     Active Substance: DONEPEZIL HYDROCHLORIDE
     Indication: Dementia Alzheimer^s type
     Dosage: 5 MG, 1X/DAY
     Route: 048
     Dates: start: 200007, end: 20000807
  2. ARICEPT [Suspect]
     Active Substance: DONEPEZIL HYDROCHLORIDE
     Dosage: 10 MG, 1X/DAY
     Route: 048
     Dates: start: 20000808, end: 20000813
  3. SERTRALINE HYDROCHLORIDE [Suspect]
     Active Substance: SERTRALINE HYDROCHLORIDE
     Dosage: 100 MG, 1X/DAY
     Route: 048
     Dates: end: 20000813
  4. DIGOXIN [Concomitant]
     Active Substance: DIGOXIN
     Indication: Atrial fibrillation
     Dosage: 0.25 MG,2 D
     Route: 048
  5. DIGOXIN [Concomitant]
     Active Substance: DIGOXIN
     Dosage: 0.125 MG,2 D
     Route: 048
  6. FLUVOXAMINE [Concomitant]
     Active Substance: FLUVOXAMINE
     Dosage: 100 MG,1 D
     Route: 048
  7. FUROSEMIDE [Concomitant]
     Active Substance: FUROSEMIDE
     Dosage: 40 MG,1 D
     Route: 048
  8. WARFARIN [Concomitant]
     Active Substance: WARFARIN
     Dosage: 5 MG,1 D
     Route: 048

REACTIONS (11)
  - Bradycardia [Recovered/Resolved]
  - Hypokalaemia [Recovered/Resolved]
  - Hypomagnesaemia [Recovered/Resolved]
  - Hyponatraemia [Recovered/Resolved]
  - Hypophosphataemia [Recovered/Resolved]
  - Ventricular arrhythmia [Recovered/Resolved]
  - Atrioventricular block complete [Recovered/Resolved]
  - Ventricular fibrillation [Recovered/Resolved]
  - Heart rate increased [Unknown]
  - Blood pressure increased [Unknown]
  - Diarrhoea [Recovered/Resolved]

NARRATIVE: CASE EVENT DATE: 20000808
